FAERS Safety Report 7030022-6 (Version None)
Quarter: 2010Q4

REPORT INFORMATION
  Report Type: 
  Country: None (occurrence: None)
  Receive Date: 20101006
  Receipt Date: 20100923
  Transmission Date: 20110411
  Serious: Yes (Hospitalization)
  Sender: FDA-Public Use
  Company Number: PHHY2010AU63540

PATIENT
  Sex: Female

DRUGS (1)
  1. CLOZARIL [Suspect]
     Dosage: 12.5 MG
     Dates: start: 20030121

REACTIONS (5)
  - ACUTE PSYCHOSIS [None]
  - BLOOD PRESSURE DECREASED [None]
  - MALAISE [None]
  - TACHYCARDIA [None]
  - TREATMENT NONCOMPLIANCE [None]
